FAERS Safety Report 6895728-8 (Version None)
Quarter: 2010Q3

REPORT INFORMATION
  Report Type: 
  Country: None (occurrence: None)
  Receive Date: 20100728
  Receipt Date: 20100716
  Transmission Date: 20110219
  Serious: Yes (Other)
  Sender: FDA-Public Use
  Company Number: ACO_01480_2010

PATIENT
  Age: 51 Year
  Sex: Female
  Weight: 92.9874 kg

DRUGS (1)
  1. AMPYRA [Suspect]
     Indication: GAIT DISTURBANCE
     Dosage: 10 MG 1X/12 HOURS ORAL
     Route: 048
     Dates: start: 20100430, end: 20100530

REACTIONS (2)
  - FALL [None]
  - LOSS OF CONSCIOUSNESS [None]
